FAERS Safety Report 26150128 (Version 1)
Quarter: 2025Q4

REPORT INFORMATION
  Report Type: Spontaneous
  Country: KR (occurrence: KR)
  Receive Date: 20251212
  Receipt Date: 20251212
  Transmission Date: 20260117
  Serious: Yes (Hospitalization)
  Sender: MACLEODS
  Company Number: KR-MLMSERVICE-20251126-PI728460-00091-1

PATIENT

DRUGS (1)
  1. CELECOXIB [Suspect]
     Active Substance: CELECOXIB
     Indication: Arthritis
     Dosage: 4 WEEKS
     Route: 065

REACTIONS (2)
  - Hepatitis cholestatic [Unknown]
  - Toxic epidermal necrolysis [Recovering/Resolving]
